FAERS Safety Report 25139810 (Version 1)
Quarter: 2025Q1

REPORT INFORMATION
  Report Type: Spontaneous
  Country: JP (occurrence: JP)
  Receive Date: 20250331
  Receipt Date: 20250331
  Transmission Date: 20250409
  Serious: Yes (Other)
  Sender: AMGEN
  Company Number: JP-AMGEN-JPNSP2025058674

PATIENT
  Age: 73 Year
  Sex: Female

DRUGS (1)
  1. ROMOSOZUMAB [Suspect]
     Active Substance: ROMOSOZUMAB
     Indication: Osteoporosis
     Route: 065

REACTIONS (5)
  - Spinal compression fracture [Unknown]
  - Fracture delayed union [Unknown]
  - Lordosis [Unknown]
  - Pelvic misalignment [Unknown]
  - Kyphosis [Unknown]
